FAERS Safety Report 23027697 (Version 1)
Quarter: 2023Q4

REPORT INFORMATION
  Report Type: Spontaneous
  Country: JP (occurrence: JP)
  Receive Date: 20231004
  Receipt Date: 20231004
  Transmission Date: 20240110
  Serious: Yes (Hospitalization)
  Sender: FDA-Public Use
  Company Number: JP-JNJFOC-20201006161

PATIENT
  Age: 8 Decade
  Sex: Male
  Weight: 64.5 kg

DRUGS (8)
  1. UPTRAVI [Suspect]
     Active Substance: SELEXIPAG
     Indication: Pulmonary arterial hypertension
     Route: 048
  2. REVATIO [Concomitant]
     Active Substance: SILDENAFIL CITRATE
     Indication: Pulmonary arterial hypertension
  3. FUROSEMIDE [Concomitant]
     Active Substance: FUROSEMIDE
  4. ESAXERENONE [Concomitant]
     Active Substance: ESAXERENONE
  5. PREDNISOLONE [Concomitant]
     Active Substance: PREDNISOLONE
  6. CLARITHROMYCIN [Concomitant]
     Active Substance: CLARITHROMYCIN
  7. RIFAMPIN [Concomitant]
     Active Substance: RIFAMPIN
  8. ETHAMBUTOL HYDROCHLORIDE [Concomitant]
     Active Substance: ETHAMBUTOL HYDROCHLORIDE

REACTIONS (2)
  - Dyspnoea exertional [Unknown]
  - Hypoxia [Unknown]
